FAERS Safety Report 20423777 (Version 2)
Quarter: 2022Q1

REPORT INFORMATION
  Report Type: Report from Study
  Country: US (occurrence: US)
  Receive Date: 20220203
  Receipt Date: 20220208
  Transmission Date: 20220423
  Serious: Yes (Hospitalization)
  Sender: FDA-Public Use
  Company Number: US-JNJFOC-20220162462

PATIENT
  Age: 19 Year
  Sex: Female
  Weight: 42.6 kg

DRUGS (2)
  1. INFLIXIMAB [Suspect]
     Active Substance: INFLIXIMAB
     Indication: Inflammatory bowel disease
     Route: 042
     Dates: start: 20160426, end: 20200810
  2. HUMIRA [Concomitant]
     Active Substance: ADALIMUMAB
     Dosage: MOST RECENT DOSE PRIOR TO THE EVENT WAS ON 01 AUG 2021
     Route: 065
     Dates: start: 20200830

REACTIONS (1)
  - Subperiosteal abscess [Recovered/Resolved]

NARRATIVE: CASE EVENT DATE: 20211126
